FAERS Safety Report 23303097 (Version 1)
Quarter: 2023Q4

REPORT INFORMATION
  Report Type: Report from Study
  Country: US (occurrence: US)
  Receive Date: 20231215
  Receipt Date: 20231215
  Transmission Date: 20240110
  Serious: Yes (Other)
  Sender: FDA-Public Use
  Company Number: US-SUN PHARMACEUTICAL INDUSTRIES LTD-2023R1-424116

PATIENT
  Sex: Male

DRUGS (8)
  1. LEVETIRACETAM [Suspect]
     Active Substance: LEVETIRACETAM
     Indication: Petit mal epilepsy
     Dosage: UNK
     Route: 065
  2. OXCARBAZEPINE [Suspect]
     Active Substance: OXCARBAZEPINE
     Indication: Petit mal epilepsy
     Dosage: UNK
     Route: 065
  3. PHENOBARBITAL [Suspect]
     Active Substance: PHENOBARBITAL
     Indication: Petit mal epilepsy
     Dosage: UNK
     Route: 065
  4. PHENYTOIN [Suspect]
     Active Substance: PHENYTOIN
     Indication: Petit mal epilepsy
     Dosage: UNK
     Route: 065
  5. VALPROIC ACID [Suspect]
     Active Substance: VALPROIC ACID
     Indication: Petit mal epilepsy
     Dosage: UNK
     Route: 065
  6. CLOBAZAM [Suspect]
     Active Substance: CLOBAZAM
     Indication: Petit mal epilepsy
     Dosage: UNK
     Route: 065
  7. PREDNISOLONE [Suspect]
     Active Substance: PREDNISOLONE
     Indication: Petit mal epilepsy
     Dosage: UNK
     Route: 065
  8. RUFINAMIDE [Suspect]
     Active Substance: RUFINAMIDE
     Indication: Petit mal epilepsy
     Dosage: UNK
     Route: 065

REACTIONS (1)
  - Treatment failure [Unknown]
